FAERS Safety Report 5246980-6 (Version None)
Quarter: 2007Q1

REPORT INFORMATION
  Report Type: 
  Country: None (occurrence: None)
  Receive Date: 20070226
  Receipt Date: 20070221
  Transmission Date: 20070707
  Serious: Yes (Hospitalization)
  Sender: FDA-Public Use
  Company Number: US-GLAXOSMITHKLINE-A0640815A

PATIENT
  Sex: Male

DRUGS (2)
  1. PAXIL CR [Suspect]
     Indication: MAJOR DEPRESSION
     Route: 048
     Dates: start: 20060901
  2. NO CONCURRENT MEDICATION [Concomitant]

REACTIONS (2)
  - HYPERSOMNIA [None]
  - MOOD SWINGS [None]
